FAERS Safety Report 8374590-0 (Version None)
Quarter: 2012Q2

REPORT INFORMATION
  Report Type: 
  Country: None (occurrence: None)
  Receive Date: 20120521
  Receipt Date: 20120511
  Transmission Date: 20120825
  Serious: Yes (Other)
  Sender: FDA-Public Use
  Company Number: JP-VERTEX PHARMACEUTICALS INC.-AE-2012-007170

PATIENT
  Age: 70 Year
  Sex: Male

DRUGS (14)
  1. TELAVIC (TELAPREVIR) [Suspect]
     Route: 048
     Dates: start: 20120223, end: 20120314
  2. RIBAVIRIN [Concomitant]
     Route: 048
     Dates: start: 20120202, end: 20120307
  3. PEGINTERFERON ALFA-2B [Concomitant]
     Route: 051
     Dates: start: 20120301, end: 20120307
  4. PEGINTERFERON ALFA-2B [Concomitant]
     Route: 051
  5. MEILAX [Concomitant]
     Route: 048
     Dates: start: 20120322
  6. PEGINTERFERON ALFA-2B [Concomitant]
     Route: 051
     Dates: start: 20120308
  7. TELAVIC (TELAPREVIR) [Suspect]
     Indication: HEPATITIS C
     Route: 048
     Dates: start: 20120202, end: 20120222
  8. TELAVIC (TELAPREVIR) [Suspect]
     Route: 048
     Dates: start: 20120315
  9. RIBAVIRIN [Concomitant]
     Route: 048
     Dates: start: 20120308
  10. TELAVIC (TELAPREVIR) [Suspect]
     Route: 048
     Dates: start: 20120405
  11. DOGMATYL [Concomitant]
     Route: 048
     Dates: start: 20120322
  12. TELAVIC (TELAPREVIR) [Suspect]
     Route: 048
     Dates: start: 20120329
  13. PEGINTERFERON ALFA-2B [Concomitant]
     Indication: HEPATITIS C
     Route: 051
     Dates: start: 20120222, end: 20120229
  14. RIBAVIRIN [Concomitant]
     Route: 048

REACTIONS (1)
  - DEPRESSION [None]
